FAERS Safety Report 6667491-7 (Version None)
Quarter: 2010Q2

REPORT INFORMATION
  Report Type: 
  Country: None (occurrence: None)
  Receive Date: 20100405
  Receipt Date: 20100326
  Transmission Date: 20101027
  Serious: Yes (Other)
  Sender: FDA-Public Use
  Company Number: BR-ROCHE-693768

PATIENT
  Sex: Male

DRUGS (1)
  1. AVASTIN [Suspect]
     Indication: DRUG USE FOR UNKNOWN INDICATION
     Dosage: THE PATIENT RECEIVED SIX APPLICATIONS OF BEVACIZUMAB.
     Route: 065

REACTIONS (2)
  - DRUG INEFFECTIVE [None]
  - OCULAR VASCULAR DISORDER [None]
